FAERS Safety Report 4393294-2 (Version None)
Quarter: 2004Q3

REPORT INFORMATION
  Report Type: 
  Country: None (occurrence: None)
  Receive Date: 20040701
  Receipt Date: 20040621
  Transmission Date: 20050211
  Serious: Yes (Life-Threatening)
  Sender: FDA-Public Use
  Company Number: 2004-DE-03371GD

PATIENT
  Age: 52 Year
  Sex: Female

DRUGS (2)
  1. DICLOFENAC (DICLOFENAC) [Suspect]
  2. MISOPROSTOL [Suspect]

REACTIONS (1)
  - TOXIC EPIDERMAL NECROLYSIS [None]
